FAERS Safety Report 9821471 (Version 1)
Quarter: 2014Q1

REPORT INFORMATION
  Report Type: Spontaneous
  Country: US (occurrence: None)
  Receive Date: 20140115
  Receipt Date: 20140115
  Transmission Date: 20141002
  Serious: Yes (Life-Threatening, Hospitalization, Other)
  Sender: FDA-Public Use
  Company Number: None

PATIENT
  Age: 34 Year
  Sex: Female
  Weight: 63.5 kg

DRUGS (4)
  1. DIVALPROEX SODIUM [Suspect]
     Indication: CONVULSION
     Route: 048
     Dates: start: 20131220, end: 20131230
  2. DIVALPROEX SODIUM [Suspect]
     Indication: AFFECTIVE DISORDER
     Route: 048
     Dates: start: 20131220, end: 20131230
  3. RISPERIDONE [Concomitant]
  4. RINIZOLE [Concomitant]

REACTIONS (4)
  - Convulsion [None]
  - Status epilepticus [None]
  - Drug level decreased [None]
  - Product substitution issue [None]
